FAERS Safety Report 20738165 (Version 1)
Quarter: 2022Q2

REPORT INFORMATION
  Report Type: Report from Study
  Country: US (occurrence: US)
  Receive Date: 20220422
  Receipt Date: 20220422
  Transmission Date: 20220720
  Serious: Yes (Hospitalization, Other)
  Sender: FDA-Public Use
  Company Number: US-BRISTOL-MYERS SQUIBB COMPANY-2022-020938

PATIENT
  Age: 87 Year
  Sex: Male
  Weight: 82.55 kg

DRUGS (1)
  1. LENALIDOMIDE [Suspect]
     Active Substance: LENALIDOMIDE
     Indication: Plasma cell myeloma
     Route: 048
     Dates: start: 20180928

REACTIONS (5)
  - Colon cancer [Unknown]
  - Atrial fibrillation [Unknown]
  - Weight decreased [Unknown]
  - Fall [Unknown]
  - Product dose omission issue [Unknown]
